FAERS Safety Report 6982634-3 (Version None)
Quarter: 2010Q3

REPORT INFORMATION
  Report Type: 
  Country: None (occurrence: None)
  Receive Date: 20100914
  Receipt Date: 20100524
  Transmission Date: 20110219
  Serious: No
  Sender: FDA-Public Use
  Company Number: US-PFIZER INC-2010001027

PATIENT
  Sex: Male
  Weight: 88.435 kg

DRUGS (2)
  1. LYRICA [Suspect]
     Indication: NEURALGIA
     Dosage: UNK
     Route: 048
     Dates: start: 20091201, end: 20091201
  2. LYRICA [Suspect]
     Dosage: UNK

REACTIONS (4)
  - DIZZINESS [None]
  - DRUG INEFFECTIVE [None]
  - HYPOKINESIA [None]
  - OEDEMA PERIPHERAL [None]
